FAERS Safety Report 12413371 (Version 2)
Quarter: 2016Q2

REPORT INFORMATION
  Report Type: Report from Study
  Country: CA (occurrence: CA)
  Receive Date: 20160527
  Receipt Date: 20160603
  Transmission Date: 20160815
  Serious: Yes (Other)
  Sender: FDA-Public Use
  Company Number: CA-JNJFOC-20160519095

PATIENT
  Age: 15 Year
  Sex: Male
  Weight: 54.5 kg

DRUGS (1)
  1. REMICADE [Suspect]
     Active Substance: INFLIXIMAB
     Indication: COLITIS ULCERATIVE
     Route: 042
     Dates: start: 20160129, end: 20160520

REACTIONS (5)
  - Drug effect incomplete [Unknown]
  - Surgery [Unknown]
  - Off label use [Unknown]
  - General physical health deterioration [Not Recovered/Not Resolved]
  - Product use issue [Unknown]

NARRATIVE: CASE EVENT DATE: 2016
